FAERS Safety Report 18121313 (Version 2)
Quarter: 2020Q4

REPORT INFORMATION
  Report Type: Spontaneous
  Country: IN (occurrence: IN)
  Receive Date: 20200806
  Receipt Date: 20201208
  Transmission Date: 20210113
  Serious: Yes (Death, Life-Threatening)
  Sender: FDA-Public Use
  Company Number: IN-CELGENEUS-IND-20200800786

PATIENT
  Age: 46 Year
  Sex: Male

DRUGS (80)
  1. ABRAXANE [Suspect]
     Active Substance: PACLITAXEL
     Dosage: 180 MILLIGRAM
     Route: 042
     Dates: start: 20190710, end: 20190710
  2. ABRAXANE [Suspect]
     Active Substance: PACLITAXEL
     Dosage: 180 MILLIGRAM
     Route: 042
     Dates: start: 20190801, end: 20190801
  3. MEDI4736 (DURVALUMAB) [Suspect]
     Active Substance: DURVALUMAB
     Indication: NON-SMALL CELL LUNG CANCER STAGE IV
     Dosage: 1500 MILLIGRAM
     Route: 042
     Dates: start: 20190611, end: 20190611
  4. MEDI4736 (DURVALUMAB) [Suspect]
     Active Substance: DURVALUMAB
     Dosage: 1500 MILLIGRAM
     Route: 042
     Dates: start: 20191111, end: 20191111
  5. MEDI4736 (DURVALUMAB) [Suspect]
     Active Substance: DURVALUMAB
     Dosage: 1500 MILLIGRAM
     Route: 042
     Dates: start: 20200110, end: 20200110
  6. TRIGLUCORED FORTE [Concomitant]
     Indication: TYPE 2 DIABETES MELLITUS
     Dosage: 1040 MILLIGRAM
     Route: 048
     Dates: start: 2009
  7. PANTOPRAZOLE [Concomitant]
     Active Substance: PANTOPRAZOLE
     Indication: GASTRITIS
     Dosage: 40 MILLIGRAM
     Route: 042
     Dates: start: 20190611, end: 20190611
  8. PANTOPRAZOLE [Concomitant]
     Active Substance: PANTOPRAZOLE
     Dosage: 40 MILLIGRAM
     Route: 042
     Dates: start: 20190618, end: 20190618
  9. PANTOPRAZOLE [Concomitant]
     Active Substance: PANTOPRAZOLE
     Dosage: 80 MILLIGRAM
     Route: 048
     Dates: start: 20190718, end: 20190720
  10. PANTOPRAZOLE [Concomitant]
     Active Substance: PANTOPRAZOLE
     Dosage: 40 MILLIGRAM
     Route: 042
     Dates: start: 20190725, end: 20190725
  11. PANTOPRAZOLE [Concomitant]
     Active Substance: PANTOPRAZOLE
     Dosage: 80 MILLIGRAM
     Route: 048
     Dates: start: 20191112
  12. ONDANSETRON [Concomitant]
     Active Substance: ONDANSETRON
     Dosage: 12 MILLIGRAM
     Route: 048
     Dates: start: 20200212, end: 20200214
  13. GLIMEPIRIDE. [Concomitant]
     Active Substance: GLIMEPIRIDE
     Indication: TYPE 2 DIABETES MELLITUS
     Route: 065
     Dates: start: 2009
  14. TELMISARTAN. [Concomitant]
     Active Substance: TELMISARTAN
     Indication: HYPERTENSION
     Route: 065
     Dates: start: 20190409
  15. ABRAXANE [Suspect]
     Active Substance: PACLITAXEL
     Dosage: 180 MILLIGRAM
     Route: 042
     Dates: start: 20190831, end: 20190831
  16. MEDI4736 (DURVALUMAB) [Suspect]
     Active Substance: DURVALUMAB
     Dosage: 1500 MILLIGRAM
     Route: 042
     Dates: start: 20190703, end: 20190703
  17. MEDI4736 (DURVALUMAB) [Suspect]
     Active Substance: DURVALUMAB
     Dosage: 1500 MILLIGRAM
     Route: 042
     Dates: start: 20191210, end: 20191210
  18. OLAPARIB. [Suspect]
     Active Substance: OLAPARIB
     Route: 048
     Dates: start: 20200211, end: 20200313
  19. CARBOPLATIN. [Suspect]
     Active Substance: CARBOPLATIN
     Dosage: 650 MILLIGRAM
     Route: 042
     Dates: start: 20190725, end: 20190725
  20. CARBOPLATIN. [Suspect]
     Active Substance: CARBOPLATIN
     Dosage: 650 MILLIGRAM
     Route: 042
     Dates: start: 20190816, end: 20190816
  21. PANTOPRAZOLE [Concomitant]
     Active Substance: PANTOPRAZOLE
     Dosage: 80 MILLIGRAM
     Route: 042
     Dates: start: 20190612, end: 20190616
  22. PANTOPRAZOLE [Concomitant]
     Active Substance: PANTOPRAZOLE
     Dosage: 80 MILLIGRAM
     Route: 048
     Dates: start: 20190619, end: 20190621
  23. PANTOPRAZOLE [Concomitant]
     Active Substance: PANTOPRAZOLE
     Dosage: 40 MILLIGRAM
     Route: 042
     Dates: start: 20190710, end: 20190710
  24. PANTOPRAZOLE [Concomitant]
     Active Substance: PANTOPRAZOLE
     Dosage: 40 MILLIGRAM
     Route: 042
     Dates: start: 20190717, end: 20190717
  25. PANTOPRAZOLE [Concomitant]
     Active Substance: PANTOPRAZOLE
     Dosage: 80 MILLIGRAM
     Route: 048
     Dates: start: 20190802, end: 20190804
  26. PIOGLITAZONE. [Concomitant]
     Active Substance: PIOGLITAZONE
     Indication: TYPE 2 DIABETES MELLITUS
     Route: 065
     Dates: start: 2009
  27. ABRAXANE [Suspect]
     Active Substance: PACLITAXEL
     Dosage: 180 MILLIGRAM
     Route: 042
     Dates: start: 20190725, end: 20190725
  28. MEDI4736 (DURVALUMAB) [Suspect]
     Active Substance: DURVALUMAB
     Dosage: 1500 MILLIGRAM
     Route: 042
     Dates: start: 20190725, end: 20190725
  29. OLAPARIB. [Suspect]
     Active Substance: OLAPARIB
     Route: 048
     Dates: start: 20191210, end: 20200110
  30. TAZLOC H [Concomitant]
     Indication: HYPERTENSION
     Dosage: 20 MILLIGRAM
     Route: 048
     Dates: start: 20190409
  31. PANTOPRAZOLE [Concomitant]
     Active Substance: PANTOPRAZOLE
     Dosage: 40 MILLIGRAM
     Route: 042
     Dates: start: 20190703, end: 20190703
  32. PANTOPRAZOLE [Concomitant]
     Active Substance: PANTOPRAZOLE
     Dosage: 80 MILLIGRAM
     Route: 048
     Dates: start: 20190704, end: 20190708
  33. PANTOPRAZOLE [Concomitant]
     Active Substance: PANTOPRAZOLE
     Dosage: 40 MILLIGRAM
     Route: 042
     Dates: start: 20200511, end: 20200511
  34. ONDANSETRON [Concomitant]
     Active Substance: ONDANSETRON
     Dosage: 12 MILLIGRAM
     Route: 048
     Dates: start: 20190802, end: 20190804
  35. ONDANSETRON [Concomitant]
     Active Substance: ONDANSETRON
     Dosage: 12 MILLIGRAM
     Route: 048
     Dates: start: 20191112
  36. ONDANSETRON [Concomitant]
     Active Substance: ONDANSETRON
     Dosage: 9 MILLIGRAM
     Route: 048
     Dates: start: 20191211, end: 20191213
  37. MEDI4736 (DURVALUMAB) [Suspect]
     Active Substance: DURVALUMAB
     Dosage: 1500 MILLIGRAM
     Route: 042
     Dates: start: 20190911, end: 20190911
  38. OLAPARIB. [Suspect]
     Active Substance: OLAPARIB
     Route: 048
     Dates: start: 20200313, end: 20200409
  39. PANTOPRAZOLE [Concomitant]
     Active Substance: PANTOPRAZOLE
     Dosage: 80 MILLIGRAM
     Route: 048
     Dates: start: 20190726, end: 20190730
  40. ONDANSETRON [Concomitant]
     Active Substance: ONDANSETRON
     Dosage: 12 MILLIGRAM
     Route: 048
     Dates: start: 20190808, end: 20190810
  41. ONDANSETRON [Concomitant]
     Active Substance: ONDANSETRON
     Dosage: 12 MILLIGRAM
     Route: 048
     Dates: start: 20200111, end: 20200113
  42. ABRAXANE [Suspect]
     Active Substance: PACLITAXEL
     Dosage: 180 MILLIGRAM
     Route: 042
     Dates: start: 20190703, end: 20190703
  43. MEDI4736 (DURVALUMAB) [Suspect]
     Active Substance: DURVALUMAB
     Dosage: 1500 MILLIGRAM
     Route: 042
     Dates: start: 20190816, end: 20190816
  44. MEDI4736 (DURVALUMAB) [Suspect]
     Active Substance: DURVALUMAB
     Dosage: 1500 MILLIGRAM
     Route: 042
     Dates: start: 20200211, end: 20200211
  45. MEDI4736 (DURVALUMAB) [Suspect]
     Active Substance: DURVALUMAB
     Dosage: 1500 MILLIGRAM
     Route: 042
     Dates: start: 20200409, end: 20200409
  46. OLAPARIB. [Suspect]
     Active Substance: OLAPARIB
     Route: 048
     Dates: start: 20200110, end: 20200211
  47. OLAPARIB. [Suspect]
     Active Substance: OLAPARIB
     Route: 048
     Dates: start: 20200511, end: 20200609
  48. CARBOPLATIN. [Suspect]
     Active Substance: CARBOPLATIN
     Indication: NON-SMALL CELL LUNG CANCER STAGE IV
     Dosage: 650 MILLIGRAM
     Route: 042
     Dates: start: 20190611, end: 20190611
  49. CARBOPLATIN. [Suspect]
     Active Substance: CARBOPLATIN
     Dosage: 650 MILLIGRAM
     Route: 042
     Dates: start: 20190703, end: 20190703
  50. ONDANSETRON [Concomitant]
     Active Substance: ONDANSETRON
     Dosage: 12 MILLIGRAM
     Route: 048
     Dates: start: 20190711, end: 20190713
  51. ONDANSETRON [Concomitant]
     Active Substance: ONDANSETRON
     Dosage: 12 MILLIGRAM
     Route: 048
     Dates: start: 20190712, end: 20190716
  52. ONDANSETRON [Concomitant]
     Active Substance: ONDANSETRON
     Dosage: 12 MILLIGRAM
     Route: 048
     Dates: start: 20190912, end: 20190914
  53. ABRAXANE [Suspect]
     Active Substance: PACLITAXEL
     Dosage: 180 MILLIGRAM
     Route: 042
     Dates: start: 20190618, end: 20190618
  54. MEDI4736 (DURVALUMAB) [Suspect]
     Active Substance: DURVALUMAB
     Dosage: 1500 MILLIGRAM
     Route: 042
     Dates: start: 20200511, end: 20200511
  55. OLAPARIB. [Suspect]
     Active Substance: OLAPARIB
     Route: 048
     Dates: start: 20200409, end: 20200511
  56. PANTOPRAZOLE [Concomitant]
     Active Substance: PANTOPRAZOLE
     Dosage: 80 MILLIGRAM
     Route: 048
     Dates: start: 20190711, end: 20190713
  57. ONDANSETRON [Concomitant]
     Active Substance: ONDANSETRON
     Indication: ANTIEMETIC SUPPORTIVE CARE
     Dosage: 12 MILLIGRAM
     Route: 048
     Dates: start: 20190619, end: 20190621
  58. ONDANSETRON [Concomitant]
     Active Substance: ONDANSETRON
     Dosage: 12 MILLIGRAM
     Route: 048
     Dates: start: 20190824, end: 20190826
  59. ONDANSETRON [Concomitant]
     Active Substance: ONDANSETRON
     Dosage: 12 MILLIGRAM
     Route: 048
     Dates: start: 20191012, end: 20191014
  60. ONDANSETRON [Concomitant]
     Active Substance: ONDANSETRON
     Dosage: 12 MILLIGRAM
     Route: 048
     Dates: start: 20200512, end: 20200514
  61. METFORMIN [Concomitant]
     Active Substance: METFORMIN HYDROCHLORIDE
     Indication: TYPE 2 DIABETES MELLITUS
     Route: 065
     Dates: start: 2009
  62. HYDROCHLOROTHIAZIDE. [Concomitant]
     Active Substance: HYDROCHLOROTHIAZIDE
     Indication: HYPERTENSION
     Route: 065
     Dates: start: 20190409
  63. ABRAXANE [Suspect]
     Active Substance: PACLITAXEL
     Dosage: 180 MILLIGRAM
     Route: 042
     Dates: start: 20190626, end: 20190626
  64. ABRAXANE [Suspect]
     Active Substance: PACLITAXEL
     Dosage: 180 MILLIGRAM
     Route: 042
     Dates: start: 20190717, end: 20190717
  65. ABRAXANE [Suspect]
     Active Substance: PACLITAXEL
     Dosage: 180 MILLIGRAM
     Route: 042
     Dates: start: 20190807, end: 20190807
  66. ABRAXANE [Suspect]
     Active Substance: PACLITAXEL
     Dosage: 180 MILLIGRAM
     Route: 042
     Dates: start: 20190823, end: 20190823
  67. OLAPARIB. [Suspect]
     Active Substance: OLAPARIB
     Route: 048
     Dates: start: 20191011, end: 20191210
  68. ONDANSETRON [Concomitant]
     Active Substance: ONDANSETRON
     Dosage: 12 MILLIGRAM
     Route: 048
     Dates: start: 20190718, end: 20190720
  69. ONDANSETRON [Concomitant]
     Active Substance: ONDANSETRON
     Dosage: 12 MILLIGRAM
     Route: 048
     Dates: start: 20190817, end: 20190821
  70. ONDANSETRON [Concomitant]
     Active Substance: ONDANSETRON
     Dosage: 12 MILLIGRAM
     Route: 048
     Dates: start: 20190901, end: 20190903
  71. ONDANSETRON [Concomitant]
     Active Substance: ONDANSETRON
     Dosage: 12 MILLIGRAM
     Route: 048
     Dates: start: 20200314, end: 20200316
  72. ABRAXANE [Suspect]
     Active Substance: PACLITAXEL
     Indication: NON-SMALL CELL LUNG CANCER STAGE IV
     Dosage: 180 MILLIGRAM
     Route: 042
     Dates: start: 20190611, end: 20190611
  73. ABRAXANE [Suspect]
     Active Substance: PACLITAXEL
     Dosage: 180 MILLIGRAM
     Route: 042
     Dates: start: 20190816, end: 20190816
  74. MEDI4736 (DURVALUMAB) [Suspect]
     Active Substance: DURVALUMAB
     Dosage: 1500 MILLIGRAM
     Route: 042
     Dates: start: 20191011, end: 20191011
  75. MEDI4736 (DURVALUMAB) [Suspect]
     Active Substance: DURVALUMAB
     Dosage: 1500 MILLIGRAM
     Route: 042
     Dates: start: 20200313, end: 20200313
  76. OLAPARIB. [Suspect]
     Active Substance: OLAPARIB
     Indication: NON-SMALL CELL LUNG CANCER STAGE IV
     Route: 048
     Dates: start: 20190911, end: 20191011
  77. PANTOPRAZOLE [Concomitant]
     Active Substance: PANTOPRAZOLE
     Dosage: 40 MILLIGRAM
     Route: 042
     Dates: start: 20190801, end: 20190801
  78. ONDANSETRON [Concomitant]
     Active Substance: ONDANSETRON
     Dosage: 12 MILLIGRAM
     Route: 048
     Dates: start: 20190627, end: 20190629
  79. ONDANSETRON [Concomitant]
     Active Substance: ONDANSETRON
     Dosage: 12 MILLIGRAM
     Route: 048
     Dates: start: 20190704, end: 20190708
  80. ONDANSETRON [Concomitant]
     Active Substance: ONDANSETRON
     Dosage: 12 MILLIGRAM
     Route: 048
     Dates: start: 20190726, end: 20190730

REACTIONS (1)
  - Non-small cell lung cancer stage IV [Fatal]

NARRATIVE: CASE EVENT DATE: 20200610
